FAERS Safety Report 20176613 (Version 2)
Quarter: 2022Q1

REPORT INFORMATION
  Report Type: Spontaneous
  Country: GB (occurrence: GB)
  Receive Date: 20211213
  Receipt Date: 20220107
  Transmission Date: 20220424
  Serious: Yes (Hospitalization, Other)
  Sender: FDA-Public Use
  Company Number: None

PATIENT
  Age: 66 Year
  Sex: Female
  Weight: 71 kg

DRUGS (2)
  1. IBUPROFEN [Suspect]
     Active Substance: IBUPROFEN
     Indication: Pyelonephritis acute
     Dosage: 400 MG, TID(400MG TDS)
     Route: 048
     Dates: start: 20211101, end: 20211110
  2. CEPHALEXIN [Suspect]
     Active Substance: CEPHALEXIN
     Indication: Pyelonephritis acute
     Dosage: 500 MG, TID  (500MG TDS)
     Route: 048
     Dates: start: 20211101, end: 20211110

REACTIONS (2)
  - Erythema multiforme [Recovering/Resolving]
  - Off label use [Unknown]

NARRATIVE: CASE EVENT DATE: 20211108
